FAERS Safety Report 10419791 (Version 1)
Quarter: 2014Q3

REPORT INFORMATION
  Report Type: Spontaneous
  Country: US (occurrence: None)
  Receive Date: 20140828
  Receipt Date: 20140828
  Transmission Date: 20150326
  Serious: Yes (Death, Hospitalization)
  Sender: FDA-Public Use
  Company Number: FK201403424

PATIENT
  Age: 19 Year
  Sex: Female

DRUGS (6)
  1. ETOPOSIDE (ETOPOSIDE) [Suspect]
     Active Substance: ETOPOSIDE
     Indication: PRECURSOR B-LYMPHOBLASTIC LYMPHOMA RECURRENT
  2. CYCLOPHOSPHAMIDE (CYCLOPHOSPHAMIDE) [Suspect]
     Active Substance: CYCLOPHOSPHAMIDE
     Indication: PRECURSOR B-LYMPHOBLASTIC LYMPHOMA RECURRENT
  3. CLOFARABINE (CLOFARABINE) (CLOFARABINE) [Suspect]
     Active Substance: CLOFARABINE
     Indication: PRECURSOR B-LYMPHOBLASTIC LYMPHOMA RECURRENT
  4. CYTARABINE (CYTARABINE) [Suspect]
     Active Substance: CYTARABINE
     Indication: PRECURSOR B-LYMPHOBLASTIC LYMPHOMA RECURRENT
  5. METHOTREXATE (METHOTREXATE) [Suspect]
     Active Substance: METHOTREXATE
     Indication: PRECURSOR B-LYMPHOBLASTIC LYMPHOMA RECURRENT
  6. HYDROCORTISONE (HYDROCORTISONE) [Suspect]
     Active Substance: HYDROCORTISONE
     Indication: PRECURSOR B-LYMPHOBLASTIC LYMPHOMA RECURRENT
     Route: 037

REACTIONS (9)
  - Enterobacter bacteraemia [None]
  - Sinusitis fungal [None]
  - Transaminases increased [None]
  - Gastrointestinal haemorrhage [None]
  - Encephalopathy [None]
  - Hyperammonaemia [None]
  - Tachypnoea [None]
  - Candida infection [None]
  - Respiratory alkalosis [None]
